FAERS Safety Report 22356798 (Version 14)
Quarter: 2024Q3

REPORT INFORMATION
  Report Type: Report from Study
  Country: BE (occurrence: BE)
  Receive Date: 20230523
  Receipt Date: 20240904
  Transmission Date: 20241017
  Serious: Yes (Hospitalization, Other)
  Sender: BAUSCH AND LOMB
  Company Number: BE-SA-SAC20230417001022

PATIENT
  Age: 65 Year
  Sex: Female
  Weight: 75.7 kg

DRUGS (43)
  1. DEXAMETHASONE [Suspect]
     Active Substance: DEXAMETHASONE
     Indication: Plasma cell myeloma refractory
     Dosage: 40 MG, QW, 08:45
     Route: 065
     Dates: start: 20230227, end: 20230326
  2. DEXAMETHASONE [Suspect]
     Active Substance: DEXAMETHASONE
     Dosage: 40 MG, QW
     Route: 065
     Dates: start: 20230327, end: 20230423
  3. DEXAMETHASONE [Suspect]
     Active Substance: DEXAMETHASONE
     Dosage: 40 MG, QW
     Route: 065
     Dates: start: 20230626, end: 20230702
  4. DEXAMETHASONE [Suspect]
     Active Substance: DEXAMETHASONE
     Dosage: 40 MG, QW
     Route: 065
     Dates: start: 20230710, end: 20230716
  5. DEXAMETHASONE [Suspect]
     Active Substance: DEXAMETHASONE
     Dosage: 40 MG, QW
     Route: 065
     Dates: start: 20231009, end: 20231030
  6. DEXAMETHASONE [Suspect]
     Active Substance: DEXAMETHASONE
     Dosage: 40 MG, QW
     Route: 065
     Dates: start: 20230529, end: 20230618
  7. DEXAMETHASONE [Suspect]
     Active Substance: DEXAMETHASONE
     Dosage: 40 MG, QW
     Route: 065
     Dates: start: 20230911, end: 20231009
  8. DEXAMETHASONE [Suspect]
     Active Substance: DEXAMETHASONE
     Dosage: 40 MG, QW
     Route: 065
     Dates: start: 20230807, end: 20230813
  9. DEXAMETHASONE [Suspect]
     Active Substance: DEXAMETHASONE
     Dosage: 40 MG, QW
     Route: 065
     Dates: start: 20230821, end: 20230904
  10. POMALIDOMIDE [Suspect]
     Active Substance: POMALIDOMIDE
     Indication: Plasma cell myeloma refractory
     Dosage: 4 MG, QD
     Route: 065
     Dates: start: 20230227, end: 20230319
  11. POMALIDOMIDE [Suspect]
     Active Substance: POMALIDOMIDE
     Dosage: 4 MG, QD
     Route: 065
     Dates: start: 20230327, end: 20230417
  12. POMALIDOMIDE [Suspect]
     Active Substance: POMALIDOMIDE
     Dosage: 4 MG, QD
     Route: 065
     Dates: start: 20230427
  13. POMALIDOMIDE [Suspect]
     Active Substance: POMALIDOMIDE
     Dosage: 4 MG, QD, 10:30
     Route: 065
     Dates: start: 20230228, end: 20230319
  14. CARFILZOMIB [Suspect]
     Active Substance: CARFILZOMIB
     Indication: Plasma cell myeloma refractory
     Dosage: UNK
     Route: 065
  15. ISATUXIMAB [Suspect]
     Active Substance: ISATUXIMAB
     Indication: Plasma cell myeloma refractory
     Dosage: 740 MG, QW, 11:30
     Route: 065
     Dates: start: 20230227, end: 20230319
  16. ISATUXIMAB [Suspect]
     Active Substance: ISATUXIMAB
     Dosage: 740 MG, BIW
     Route: 065
     Dates: start: 20230327, end: 20230417
  17. ISATUXIMAB [Suspect]
     Active Substance: ISATUXIMAB
     Dosage: 750MG, BIW
     Route: 065
     Dates: start: 20230424, end: 20230515
  18. ISATUXIMAB [Suspect]
     Active Substance: ISATUXIMAB
     Dosage: 780 MG , BIW
     Route: 065
     Dates: start: 20230522, end: 20230618
  19. ISATUXIMAB [Suspect]
     Active Substance: ISATUXIMAB
     Dosage: 770 MG , BIW
     Route: 065
     Dates: start: 20230717, end: 20230813
  20. ISATUXIMAB [Suspect]
     Active Substance: ISATUXIMAB
     Dosage: 760 MG , BIW
     Route: 065
     Dates: start: 20230619, end: 20230710
  21. ISATUXIMAB [Suspect]
     Active Substance: ISATUXIMAB
     Dosage: 780 MG , BIW
     Route: 065
     Dates: start: 20231009, end: 20231030
  22. ISATUXIMAB [Suspect]
     Active Substance: ISATUXIMAB
     Dosage: 770 MG , BIW
     Route: 065
     Dates: start: 20230911, end: 20231002
  23. ISATUXIMAB [Suspect]
     Active Substance: ISATUXIMAB
     Dosage: 770 MG , BIW
     Route: 065
     Dates: start: 20230814, end: 20230904
  24. LEVOCETIRIZINE HYDROCHLORIDE [Concomitant]
     Active Substance: LEVOCETIRIZINE HYDROCHLORIDE
     Indication: Prophylaxis
     Dates: start: 20230227, end: 20230227
  25. LEVOCETIRIZINE HYDROCHLORIDE [Concomitant]
     Active Substance: LEVOCETIRIZINE HYDROCHLORIDE
     Dates: start: 20230327, end: 20230327
  26. LEVOCETIRIZINE HYDROCHLORIDE [Concomitant]
     Active Substance: LEVOCETIRIZINE HYDROCHLORIDE
     Dates: start: 20230313, end: 20230313
  27. LEVOCETIRIZINE HYDROCHLORIDE [Concomitant]
     Active Substance: LEVOCETIRIZINE HYDROCHLORIDE
     Dates: start: 20230306, end: 20230306
  28. PERINDOPRIL ARGININE [Concomitant]
     Active Substance: PERINDOPRIL ARGININE
     Indication: Prophylaxis
     Dates: start: 20171016
  29. CALCIUM [Concomitant]
     Active Substance: CALCIUM
     Indication: Prophylaxis
     Dates: start: 20170310
  30. ENOXAPARIN SODIUM [Concomitant]
     Active Substance: ENOXAPARIN SODIUM
     Indication: Prophylaxis
     Dates: start: 20170310
  31. PANTOPRAZOLE [Concomitant]
     Active Substance: PANTOPRAZOLE
     Indication: Prophylaxis
     Dates: start: 20170223
  32. ACYCLOVIR [Concomitant]
     Active Substance: ACYCLOVIR
     Indication: Prophylaxis
     Dates: start: 20170307
  33. CHOLECALCIFEROL [Concomitant]
     Active Substance: CHOLECALCIFEROL
     Indication: Prophylaxis
     Dates: start: 20230227
  34. METARELAX [Concomitant]
     Indication: Prophylaxis
     Dates: start: 20180709
  35. DAFALGAN [Concomitant]
     Active Substance: ACETAMINOPHEN
     Indication: Prophylaxis
     Dates: start: 20230424, end: 20230424
  36. DAFALGAN [Concomitant]
     Active Substance: ACETAMINOPHEN
     Dates: start: 20230327, end: 20230327
  37. DAFALGAN [Concomitant]
     Active Substance: ACETAMINOPHEN
     Dates: start: 20230411, end: 20230411
  38. DAFALGAN [Concomitant]
     Active Substance: ACETAMINOPHEN
     Dates: start: 20230306, end: 20230306
  39. DAFALGAN [Concomitant]
     Active Substance: ACETAMINOPHEN
     Dates: start: 20230522, end: 20230522
  40. DAFALGAN [Concomitant]
     Active Substance: ACETAMINOPHEN
     Dates: start: 20230313, end: 20230313
  41. DAFALGAN [Concomitant]
     Active Substance: ACETAMINOPHEN
     Dates: start: 20230508, end: 20230508
  42. DAFALGAN [Concomitant]
     Active Substance: ACETAMINOPHEN
     Dates: start: 20230227, end: 20230227
  43. LOPERAMIDE HYDROCHLORIDE [Concomitant]
     Active Substance: LOPERAMIDE HYDROCHLORIDE
     Indication: Prophylaxis
     Dates: start: 20230327

REACTIONS (6)
  - Acute lymphocytic leukaemia [Not Recovered/Not Resolved]
  - Febrile neutropenia [Recovering/Resolving]
  - Neutrophil count decreased [Recovered/Resolved]
  - Platelet count decreased [Recovering/Resolving]
  - Anaemia [Recovering/Resolving]
  - Insomnia [Recovering/Resolving]

NARRATIVE: CASE EVENT DATE: 20230320
